FAERS Safety Report 6591289-1 (Version None)
Quarter: 2010Q1

REPORT INFORMATION
  Report Type: 
  Country: None (occurrence: None)
  Receive Date: 20100219
  Receipt Date: 20100209
  Transmission Date: 20100710
  Serious: Yes (Other)
  Sender: FDA-Public Use
  Company Number: KR-PFIZER INC-2010018504

PATIENT
  Age: 64 Year
  Sex: Female

DRUGS (4)
  1. PREGABALIN [Suspect]
     Indication: MUSCULOSKELETAL PAIN
     Dosage: 300MG PER DAY
     Dates: start: 20080401
  2. PREGABALIN [Suspect]
     Indication: BACK PAIN
  3. MIRTAZAPINE [Suspect]
     Indication: MAJOR DEPRESSION
     Dosage: 15-45MG DAILY
     Dates: start: 20030101, end: 20080101
  4. MIRTAZAPINE [Suspect]
     Dosage: 15 MG DAILY
     Dates: start: 20080101, end: 20080501

REACTIONS (1)
  - RESTLESS LEGS SYNDROME [None]
